FAERS Safety Report 14244403 (Version 2)
Quarter: 2018Q1

REPORT INFORMATION
  Report Type: Report from Study
  Country: GB (occurrence: GB)
  Receive Date: 20171201
  Receipt Date: 20180207
  Transmission Date: 20180508
  Serious: Yes (Other)
  Sender: FDA-Public Use
  Company Number: GB-BRISTOL-MYERS SQUIBB COMPANY-BMS-2017-105670

PATIENT
  Age: 28 Year
  Sex: Female

DRUGS (1)
  1. ABATACEPT [Suspect]
     Active Substance: ABATACEPT
     Indication: RHEUMATOID ARTHRITIS
     Dosage: 125 MG, QWK
     Route: 058
     Dates: start: 20170601

REACTIONS (4)
  - Vomiting [Unknown]
  - Malaise [Unknown]
  - Musculoskeletal pain [Recovered/Resolved]
  - Articular calcification [Unknown]

NARRATIVE: CASE EVENT DATE: 20171022
